FAERS Safety Report 8517963-5 (Version None)
Quarter: 2012Q3

REPORT INFORMATION
  Report Type: 
  Country: None (occurrence: None)
  Receive Date: 20120718
  Receipt Date: 20120711
  Transmission Date: 20120928
  Serious: Yes (Other)
  Sender: FDA-Public Use
  Company Number: GB-ASTELLAS-2012EU003230

PATIENT
  Sex: Female
  Weight: 82 kg

DRUGS (6)
  1. ATORVASTATIN [Concomitant]
     Dosage: 10 MG, UID/QD
     Route: 065
  2. VESICARE [Suspect]
     Indication: URGE INCONTINENCE
     Dosage: 10 MG, UNKNOWN/D
     Route: 048
     Dates: start: 20120101
  3. DOXYCYCLINE [Concomitant]
     Dosage: 100 MG, OTHER
     Route: 065
  4. OMEPRAZOLE [Concomitant]
     Dosage: 20 MG, BID
     Route: 065
  5. LEVOTHYROXINE SODIUM [Concomitant]
     Dosage: 25 UG, OTHER
     Route: 065
  6. ALLOPURINOL [Concomitant]
     Dosage: 100 MG, UID/QD
     Route: 065

REACTIONS (6)
  - DYSPHAGIA [None]
  - DRY MOUTH [None]
  - DYSPEPSIA [None]
  - COUGH [None]
  - NAUSEA [None]
  - INCREASED UPPER AIRWAY SECRETION [None]
